FAERS Safety Report 8992736 (Version 1)
Quarter: 2013Q1

REPORT INFORMATION
  Report Type: Report from Study
  Country: GB (occurrence: GB)
  Receive Date: 20130102
  Receipt Date: 20130102
  Transmission Date: 20140127
  Serious: Yes (Life-Threatening)
  Sender: FDA-Public Use
  Company Number: GB-ROCHE-1175491

PATIENT
  Sex: Male
  Weight: 70 kg

DRUGS (15)
  1. ALTEPLASE [Suspect]
     Indication: ACUTE MYOCARDIAL INFARCTION
     Route: 042
     Dates: start: 19981001, end: 19981001
  2. MORPHINE [Suspect]
     Indication: PRODUCT USED FOR UNKNOWN INDICATION
     Route: 065
  3. SALICYLATE [Suspect]
     Indication: PRODUCT USED FOR UNKNOWN INDICATION
     Route: 065
  4. DIAMORPHINE [Concomitant]
     Route: 042
  5. METOCLOPRAMIDE [Concomitant]
     Route: 042
  6. ASPIRIN [Concomitant]
     Route: 048
  7. ASPIRIN [Concomitant]
     Route: 048
  8. LISINOPRIL [Concomitant]
     Route: 048
  9. LISINOPRIL [Concomitant]
     Route: 048
  10. FRUSEMIDE [Concomitant]
     Route: 048
  11. FRUSEMIDE [Concomitant]
     Route: 048
  12. OMEPRAZOLE [Concomitant]
     Route: 048
  13. OMEPRAZOLE [Concomitant]
     Route: 048
  14. HEPARIN [Concomitant]
     Route: 042
  15. HEPARIN [Concomitant]
     Route: 048

REACTIONS (1)
  - Rhabdomyolysis [Recovered/Resolved]
